FAERS Safety Report 12450577 (Version 1)
Quarter: 2016Q2

REPORT INFORMATION
  Report Type: Spontaneous
  Country: ID (occurrence: ID)
  Receive Date: 20160609
  Receipt Date: 20160609
  Transmission Date: 20160815
  Serious: Yes (Other)
  Sender: FDA-Public Use
  Company Number: ID-ROCHE-1772791

PATIENT

DRUGS (1)
  1. AVASTIN [Suspect]
     Active Substance: BEVACIZUMAB
     Indication: COLORECTAL CANCER METASTATIC
     Route: 065

REACTIONS (5)
  - Haemorrhage [Unknown]
  - Hypertension [Unknown]
  - Haematuria [Unknown]
  - Perforation [Unknown]
  - Proteinuria [Unknown]
